FAERS Safety Report 9208964 (Version 1)
Quarter: 2013Q1

REPORT INFORMATION
  Report Type: Spontaneous
  Country: US (occurrence: None)
  Receive Date: 20120817
  Receipt Date: 20120817
  Transmission Date: 20140127
  Serious: Yes (Hospitalization, Other)
  Sender: FDA-Public Use
  Company Number: ADR-2012-00833

PATIENT
  Sex: Male

DRUGS (5)
  1. BACLOFEN INTRATHECAL (BACLOFEN INJECTION) [Suspect]
     Indication: PAIN
  2. BACLOFEN INTRATHECAL (BACLOFEN INJECTION) [Suspect]
     Indication: BRACHIAL PLEXUS INJURY
  3. DILAUDID (HYDROMORPHONE) [Concomitant]
  4. CLONIDINE [Concomitant]
  5. BUPIVACAINE [Concomitant]

REACTIONS (1)
  - Sedation [None]
